FAERS Safety Report 5248168-1 (Version None)
Quarter: 2007Q1

REPORT INFORMATION
  Report Type: 
  Country: None (occurrence: None)
  Receive Date: 20070227
  Receipt Date: 20060421
  Transmission Date: 20070707
  Serious: No
  Sender: FDA-Public Use
  Company Number: US-BRISTOL-MYERS SQUIBB COMPANY-13354196

PATIENT
  Age: 5 Decade
  Sex: Female

DRUGS (1)
  1. GLUCOPHAGE [Suspect]
     Indication: DIABETES MELLITUS MANAGEMENT
     Dosage: DURATION OF THERAPY - AT LEAST A COUPLE OF MONTHS

REACTIONS (1)
  - SKIN HYPERPIGMENTATION [None]
